FAERS Safety Report 9295875 (Version 1)
Quarter: 2013Q1

REPORT INFORMATION
  Report Type: Spontaneous
  Country: US (occurrence: None)
  Receive Date: 20121227
  Receipt Date: 20121227
  Transmission Date: 20140127
  Serious: No
  Sender: FDA-Public Use
  Company Number: PHEH2012US021446

PATIENT
  Sex: Female

DRUGS (8)
  1. AFINITOR [Suspect]
     Route: 048
  2. PANTOPRAZOLE (PANTOPRAZOLE) [Concomitant]
  3. PROCHLORPERAZ (PROCHLORPERAZINE MALEATE) [Concomitant]
  4. ONDANSETRON (ONDANSETRON) [Concomitant]
  5. OXYCODONE (OXYCODONE) [Concomitant]
  6. METRONIDAZOLE (METRONIDAZOLE) [Concomitant]
  7. LEVOFLOXACIN (LEVOFLOXACIN) [Concomitant]
  8. FENTANYL (FENTANYL) [Concomitant]

REACTIONS (1)
  - Blood calcium increased [None]
